FAERS Safety Report 4341631-7 (Version None)
Quarter: 2004Q2

REPORT INFORMATION
  Report Type: 
  Country: None (occurrence: None)
  Receive Date: 20040420
  Receipt Date: 20031015
  Transmission Date: 20050107
  Serious: Yes (Hospitalization)
  Sender: FDA-Public Use
  Company Number: PL-ROCHE-349275

PATIENT
  Age: 44 Year
  Sex: Male
  Weight: 84.9 kg

DRUGS (2)
  1. PEG-INTERFERON ALFA 2A (RO 25-8310) [Suspect]
     Route: 058
     Dates: start: 20021128, end: 20031009
  2. RIBAVIRIN [Suspect]
     Route: 048
     Dates: start: 20021128, end: 20031014

REACTIONS (3)
  - CARDIOVASCULAR DISORDER [None]
  - LOSS OF CONSCIOUSNESS [None]
  - SYNCOPE [None]
